FAERS Safety Report 20512341 (Version 3)
Quarter: 2022Q1

REPORT INFORMATION
  Report Type: Report from Study
  Country: IL (occurrence: None)
  Receive Date: 20220224
  Receipt Date: 20220302
  Transmission Date: 20220423
  Serious: Yes (Death)
  Sender: FDA-Public Use
  Company Number: IL-Eisai Medical Research-EC-2022-109411

PATIENT
  Age: 63 Year
  Sex: Female
  Weight: 51.5 kg

DRUGS (9)
  1. LENVATINIB [Suspect]
     Active Substance: LENVATINIB
     Indication: Small cell lung cancer extensive stage
     Route: 048
     Dates: start: 20211110, end: 20220219
  2. QUAVONLIMAB [Suspect]
     Active Substance: QUAVONLIMAB
     Indication: Small cell lung cancer extensive stage
     Dosage: QUAVONLIMAB 25 MG PLUS PEMBROLIZUMAB 400 MG
     Route: 042
     Dates: start: 20211110, end: 20211222
  3. PEMBROLIZUMAB [Suspect]
     Active Substance: PEMBROLIZUMAB
     Dosage: QUAVONLIMAB 25 MG PLUS PEMBROLIZUMAB 400 MG
     Route: 042
     Dates: start: 20220201, end: 20220201
  4. OMEPRAZOLE [Concomitant]
     Active Substance: OMEPRAZOLE
     Dates: start: 201001
  5. SLOW-K [Concomitant]
     Active Substance: POTASSIUM CHLORIDE
     Dates: start: 201911
  6. LORAZEPAM [Concomitant]
     Active Substance: LORAZEPAM
     Dates: start: 202101
  7. EUTHYROX [Concomitant]
     Active Substance: LEVOTHYROXINE SODIUM
     Dates: start: 202107
  8. DONEPEZIL [Concomitant]
     Active Substance: DONEPEZIL
     Dates: start: 202109
  9. LEVETIRACETAM [Concomitant]
     Active Substance: LEVETIRACETAM
     Dates: start: 20220112

REACTIONS (1)
  - Malignant neoplasm progression [Fatal]

NARRATIVE: CASE EVENT DATE: 20220219
